FAERS Safety Report 19495855 (Version 1)
Quarter: 2021Q3

REPORT INFORMATION
  Report Type: Spontaneous
  Country: US (occurrence: US)
  Receive Date: 20210702
  Receipt Date: 20210702
  Transmission Date: 20211014
  Serious: Yes (Hospitalization)
  Sender: FDA-Public Use
  Company Number: None

PATIENT
  Age: 75 Year
  Sex: Female

DRUGS (2)
  1. FORTEO [Suspect]
     Active Substance: TERIPARATIDE
     Indication: OSTEOPOROSIS
     Route: 058
     Dates: start: 20210508
  2. N/A [Concomitant]
     Active Substance: UNSPECIFIED INGREDIENT

REACTIONS (3)
  - Adverse drug reaction [None]
  - Hospitalisation [None]
  - Therapy interrupted [None]
